FAERS Safety Report 8445317-9 (Version None)
Quarter: 2012Q2

REPORT INFORMATION
  Report Type: 
  Country: None (occurrence: None)
  Receive Date: 20120618
  Receipt Date: 20120615
  Transmission Date: 20120825
  Serious: Yes (Other)
  Sender: FDA-Public Use
  Company Number: GB-JNJFOC-20120508969

PATIENT
  Sex: Male

DRUGS (12)
  1. DOXORUBICIN HCL [Suspect]
     Route: 042
  2. DOXORUBICIN HCL [Suspect]
     Route: 042
  3. DOXORUBICIN HCL [Suspect]
     Route: 065
  4. DOXORUBICIN HCL [Suspect]
     Route: 065
  5. DOXORUBICIN HCL [Suspect]
     Route: 065
  6. DOXORUBICIN HCL [Suspect]
     Route: 042
  7. DOXORUBICIN HCL [Suspect]
     Route: 065
  8. DOXORUBICIN HCL [Suspect]
     Route: 065
  9. DOXORUBICIN HCL [Suspect]
     Route: 042
  10. DOXORUBICIN HCL [Suspect]
     Indication: METASTATIC NEOPLASM
     Route: 042
  11. DOXORUBICIN HCL [Suspect]
     Route: 042
  12. DOXORUBICIN HCL [Suspect]
     Route: 065

REACTIONS (2)
  - OFF LABEL USE [None]
  - CARDIAC FAILURE [None]
